FAERS Safety Report 16469752 (Version 1)
Quarter: 2019Q3

REPORT INFORMATION
  Report Type: Spontaneous
  Country: US (occurrence: US)
  Receive Date: 20190623
  Receipt Date: 20190623
  Transmission Date: 20191004
  Serious: Yes (Other)
  Sender: FDA-Public Use
  Company Number: None

PATIENT
  Age: 62 Year
  Sex: Female
  Weight: 72 kg

DRUGS (11)
  1. S CITALOPRAM [Concomitant]
  2. SINGULAIR [Concomitant]
     Active Substance: MONTELUKAST SODIUM
  3. VITAMIN D [Concomitant]
     Active Substance: VITAMIN D NOS
  4. CALCIUM [Concomitant]
     Active Substance: CALCIUM
  5. LEVAQUIN [Suspect]
     Active Substance: LEVOFLOXACIN
     Indication: EAR INFECTION
     Dosage: ?          QUANTITY:7 TABLET(S);?
     Route: 048
     Dates: start: 20190613, end: 20190620
  6. ZYRTEC [Concomitant]
     Active Substance: CETIRIZINE HYDROCHLORIDE
  7. PHENOBARBITAL. [Concomitant]
     Active Substance: PHENOBARBITAL
  8. MELATONIN [Concomitant]
     Active Substance: MELATONIN
  9. SYNTHROID [Concomitant]
     Active Substance: LEVOTHYROXINE SODIUM
  10. FEMARA [Concomitant]
     Active Substance: LETROZOLE
  11. ALLERGY SHOTS [Concomitant]
     Active Substance: UNSPECIFIED INGREDIENT

REACTIONS (2)
  - Pain in extremity [None]
  - Arthralgia [None]

NARRATIVE: CASE EVENT DATE: 20190622
